FAERS Safety Report 18186539 (Version 2)
Quarter: 2020Q3

REPORT INFORMATION
  Report Type: Spontaneous
  Country: FR (occurrence: FR)
  Receive Date: 20200824
  Receipt Date: 20200925
  Transmission Date: 20201103
  Serious: Yes (Hospitalization)
  Sender: FDA-Public Use
  Company Number: FR-ACCORD-196654

PATIENT
  Age: 50 Year
  Sex: Female
  Weight: 61.8 kg

DRUGS (2)
  1. IRINOTECAN ACCORD [Suspect]
     Active Substance: IRINOTECAN
     Indication: ADENOCARCINOMA METASTATIC
     Route: 041
     Dates: start: 20200623
  2. OXALIPLATIN ACCORD [Suspect]
     Active Substance: OXALIPLATIN
     Indication: ADENOCARCINOMA METASTATIC
     Route: 041
     Dates: start: 20200623

REACTIONS (3)
  - Nausea [Recovered/Resolved]
  - Neuropathy peripheral [Unknown]
  - Dysarthria [Recovered/Resolved]

NARRATIVE: CASE EVENT DATE: 20200707
